FAERS Safety Report 4772196-3 (Version None)
Quarter: 2005Q3

REPORT INFORMATION
  Report Type: 
  Country: None (occurrence: None)
  Receive Date: 20050919
  Receipt Date: 20041116
  Transmission Date: 20060218
  Serious: No
  Sender: FDA-Public Use
  Company Number: US-BRISTOL-MYERS SQUIBB COMPANY-12767315

PATIENT
  Age: 80 Year
  Sex: Female
  Weight: 82 kg

DRUGS (2)
  1. DEFINITY [Suspect]
     Indication: STRESS ECHOCARDIOGRAM
     Dosage: DILUTED WITH .9N 4CC.  MECHANICAL INDEX SETTING 0.5
     Route: 042
     Dates: start: 20041106, end: 20041106
  2. DOBUTAMINE HCL [Suspect]
     Dosage: 500 MG/250 @ 10 MCG/KG/MN
     Dates: start: 20041106

REACTIONS (1)
  - BACK PAIN [None]
